FAERS Safety Report 23118784 (Version 3)
Quarter: 2024Q1

REPORT INFORMATION
  Report Type: Report from Study
  Country: US (occurrence: US)
  Receive Date: 20231028
  Receipt Date: 20240112
  Transmission Date: 20240410
  Serious: No
  Sender: FDA-Public Use
  Company Number: US-002147023-NVSC2023US231494

PATIENT
  Sex: Female

DRUGS (1)
  1. ENTRESTO [Suspect]
     Active Substance: SACUBITRIL\VALSARTAN
     Indication: Product used for unknown indication
     Dosage: 1 DOSAGE FORM, BID
     Route: 065
     Dates: start: 202307

REACTIONS (6)
  - Gout [Unknown]
  - Limb discomfort [Unknown]
  - Stress [Unknown]
  - Mobility decreased [Unknown]
  - Cough [Unknown]
  - Chest discomfort [Unknown]
